FAERS Safety Report 4650741-6 (Version None)
Quarter: 2005Q2

REPORT INFORMATION
  Report Type: 
  Country: None (occurrence: None)
  Receive Date: 20050503
  Receipt Date: 20040920
  Transmission Date: 20051028
  Serious: Yes (Hospitalization, Other)
  Sender: FDA-Public Use
  Company Number: US-BOEHRINGER INGELHEIM PHARMACEUTICALS, INC.-2004-BP-08447BP

PATIENT
  Sex: Male

DRUGS (2)
  1. FLOMAX [Suspect]
     Route: 048
     Dates: start: 20000101
  2. PREVACID [Concomitant]

REACTIONS (4)
  - CHEST PAIN [None]
  - DYSPHAGIA [None]
  - DYSURIA [None]
  - LUNG NEOPLASM MALIGNANT [None]
